FAERS Safety Report 16686467 (Version 1)
Quarter: 2019Q3

REPORT INFORMATION
  Report Type: Spontaneous
  Country: CH (occurrence: CH)
  Receive Date: 20190809
  Receipt Date: 20190809
  Transmission Date: 20191004
  Serious: Yes (Other)
  Sender: FDA-Public Use
  Company Number: CH-ROCHE-2365978

PATIENT
  Age: 74 Year

DRUGS (7)
  1. OCREVUS [Suspect]
     Active Substance: OCRELIZUMAB
     Dosage: DIVIDED INTO 2 EQUAL DOSES OF 300 MG EACH ON 31-JAN-2018 AND 14-FEB-2018
     Route: 042
     Dates: start: 20180808
  2. OCREVUS [Suspect]
     Active Substance: OCRELIZUMAB
     Indication: MULTIPLE SCLEROSIS
     Dosage: DIVIDED INTO 2 EQUAL DOSES OF 300 MG EACH ON 31-JAN-2018 AND 14-FEB-2018
     Route: 042
     Dates: start: 20180113
  3. FAMPYRA [Concomitant]
     Active Substance: DALFAMPRIDINE
     Route: 065
  4. EMSELEX [DARIFENACIN] [Concomitant]
     Route: 065
  5. OCREVUS [Suspect]
     Active Substance: OCRELIZUMAB
     Dosage: DIVIDED INTO 2 EQUAL DOSES OF 300 MG EACH ON 31-JAN-2018 AND 14-FEB-2018
     Route: 042
     Dates: start: 20190204, end: 20190204
  6. ATORVASTATIN CALCIUM. [Concomitant]
     Active Substance: ATORVASTATIN CALCIUM
     Route: 065
  7. BILOL [Concomitant]
     Active Substance: BISOPROLOL
     Route: 065

REACTIONS (1)
  - Multiple sclerosis [Recovering/Resolving]
